FAERS Safety Report 11844439 (Version 1)
Quarter: 2015Q4

REPORT INFORMATION
  Report Type: Spontaneous
  Country: US (occurrence: None)
  Receive Date: 20151216
  Receipt Date: 20151216
  Transmission Date: 20160305
  Serious: No
  Sender: FDA-Public Use
  Company Number: None

PATIENT
  Age: 43 Year
  Sex: Female

DRUGS (1)
  1. REMICADE [Suspect]
     Active Substance: INFLIXIMAB
     Dosage: EVERY 6 WEEKS
     Route: 042
     Dates: start: 20150821

REACTIONS (4)
  - Dyspnoea [None]
  - Urticaria [None]
  - Swollen tongue [None]
  - Hypersensitivity [None]
